FAERS Safety Report 18190776 (Version 1)
Quarter: 2020Q3

REPORT INFORMATION
  Report Type: Spontaneous
  Country: FR (occurrence: FR)
  Receive Date: 20200825
  Receipt Date: 20200825
  Transmission Date: 20201103
  Serious: Yes (Hospitalization)
  Sender: FDA-Public Use
  Company Number: FR-BEH-2020121617

PATIENT
  Age: 61 Year
  Sex: Male
  Weight: 72 kg

DRUGS (1)
  1. PRIVIGEN [Suspect]
     Active Substance: HUMAN IMMUNOGLOBULIN G
     Indication: CHRONIC INFLAMMATORY DEMYELINATING POLYRADICULONEUROPATHY
     Dosage: 40 GRAM, QD
     Route: 042
     Dates: start: 20160104, end: 20160318

REACTIONS (2)
  - Palmoplantar keratoderma [Recovering/Resolving]
  - Dyshidrotic eczema [Recovering/Resolving]

NARRATIVE: CASE EVENT DATE: 201602
